FAERS Safety Report 9995428 (Version 1)
Quarter: 2014Q1

REPORT INFORMATION
  Report Type: Spontaneous
  Country: US (occurrence: None)
  Receive Date: 20140306
  Receipt Date: 20140306
  Transmission Date: 20141002
  Serious: Yes (Other)
  Sender: FDA-Public Use
  Company Number: ACX-2014-000144

PATIENT
  Age: 49 Year
  Sex: Female
  Weight: 72.1 kg

DRUGS (11)
  1. BENTYL [Suspect]
     Indication: ABDOMINAL PAIN
     Dates: start: 201312
  2. BENTYL [Suspect]
     Indication: IMPAIRED GASTRIC EMPTYING
     Dates: start: 201312
  3. INLYTA (AXITINIB) [Concomitant]
  4. DALANTERCEPT [Concomitant]
  5. XANAX (ALPRAZOLAM) [Concomitant]
  6. DEXILANT (DEXLANSOPRAZOLE) [Concomitant]
  7. PROTONIX (PANTOPRAZOLE SODIUM SESQUIHYDRATE) [Concomitant]
  8. DILAUDID (HYDROMORPHONE HYDROCHLORIDE) [Concomitant]
  9. TORADOL (KETOROLAC TROMETHAMINE) [Concomitant]
  10. MIRALAX (MACROGOL) [Concomitant]
  11. COLACE (DOCUSATE SODIUM) [Concomitant]

REACTIONS (3)
  - Drug ineffective [None]
  - Malignant neoplasm progression [None]
  - Metastatic renal cell carcinoma [None]
